FAERS Safety Report 21394266 (Version 1)
Quarter: 2022Q3

REPORT INFORMATION
  Report Type: Spontaneous
  Country: DE (occurrence: DE)
  Receive Date: 20220930
  Receipt Date: 20220930
  Transmission Date: 20221026
  Serious: Yes (Hospitalization, Other)
  Sender: FDA-Public Use
  Company Number: DE-ADRED-07412-01

PATIENT
  Age: 83 Year
  Sex: Male
  Weight: 68 kg

DRUGS (12)
  1. RIVAROXABAN [Suspect]
     Active Substance: RIVAROXABAN
     Indication: Product used for unknown indication
     Dosage: 15 MILLIGRAM DAILY; 15 MG, 1-0-0-0, STRENGTH : 15 MG, UNIT DOSE : 15 MG
  2. CLOPIDOGREL [Suspect]
     Active Substance: CLOPIDOGREL BISULFATE
     Indication: Product used for unknown indication
     Dosage: 75 MILLIGRAM DAILY; 75 MG, 0-1-0-0, STRENGTH : 75 MG, UNIT DOSE : 75 MG
  3. GABAPENTIN [Concomitant]
     Active Substance: GABAPENTIN
     Indication: Product used for unknown indication
     Dosage: 300 MG, 1-1-1-0, UNIT DOSE: 900 MG , FREQUENCY TIME : 1 DAY, STRENGTH : 300 MG
  4. TORSEMIDE [Concomitant]
     Active Substance: TORSEMIDE
     Indication: Product used for unknown indication
     Dosage: 10 MILLIGRAM DAILY; 10 MG, 1-0-0-0, UNIT DOSE: 10 MG , STRENGTH : 10 MG
  5. PANTOPRAZOLE [Concomitant]
     Active Substance: PANTOPRAZOLE
     Indication: Product used for unknown indication
     Dosage: 40 MILLIGRAM DAILY; 40 MG, 1-0-0-0, UNIT DOSE: 40 MG , STRENGTH : 40 MG
  6. NITRENDIPINE [Concomitant]
     Active Substance: NITRENDIPINE
     Indication: Product used for unknown indication
     Dosage: 20 MG, 1-0-1-0, UNIT DOSE: 40 MG , FREQUENCY TIME : 1 HOUR, STRENGTH : 20 MG
  7. EPLERENONE [Concomitant]
     Active Substance: EPLERENONE
     Indication: Product used for unknown indication
     Dosage: 50 MILLIGRAM DAILY; 50 MG, 1-0-0-0, UNIT DOSE: 50 MG , STRENGTH : 50 MG
  8. URAPIDIL HYDROCHLORIDE [Concomitant]
     Active Substance: URAPIDIL HYDROCHLORIDE
     Indication: Product used for unknown indication
     Dosage: 60 MG, 1-0-1-1, UNIT DOSE: 180 MG , FREQUENCY TIME : 1 DAY, STRENGTH : 60 MG
  9. ATORVASTATIN [Concomitant]
     Active Substance: ATORVASTATIN
     Indication: Product used for unknown indication
     Dosage: 40 MILLIGRAM DAILY; 40 MG, 0-0-1-0, UNIT DOSE: 40 MG, STRENGTH : 40 MG
  10. BISOPROLOL [Concomitant]
     Active Substance: BISOPROLOL
     Indication: Product used for unknown indication
     Dosage: 2.5 MG, 1-0-1-0, UNIT DOSE: 5 MG , FREQUENCY TIME : 1 DAY, STRENGTH : 2.5 MG
  11. TROSPIUM [Concomitant]
     Active Substance: TROSPIUM
     Indication: Product used for unknown indication
     Dosage: 30 MILLIGRAM DAILY; 30 MG, 1-0-0-0, UNIT DOSE: 30 MG , STRENGTH : 30 MG
  12. CANDESARTAN [Concomitant]
     Active Substance: CANDESARTAN
     Indication: Product used for unknown indication
     Dosage: 16 MG, 1-0-1-0, UNIT DOSE: 32 MG , FREQUENCY TIME : 1 DAY, STRENGTH : 16 MG

REACTIONS (12)
  - Fatigue [Unknown]
  - General physical health deterioration [Unknown]
  - Syncope [Unknown]
  - Blood loss anaemia [Unknown]
  - Gait disturbance [Unknown]
  - Anaemia [Unknown]
  - Diarrhoea [Unknown]
  - Dysstasia [Unknown]
  - Hypotension [Unknown]
  - Asthenia [Unknown]
  - Haematuria [Unknown]
  - Haematuria [Unknown]
